FAERS Safety Report 6193672-5 (Version None)
Quarter: 2009Q2

REPORT INFORMATION
  Report Type: 
  Country: None (occurrence: None)
  Receive Date: 20090518
  Receipt Date: 20090506
  Transmission Date: 20091009
  Serious: Yes (Death, Other)
  Sender: FDA-Public Use
  Company Number: US-PFIZER INC-2006099879

PATIENT
  Sex: Female
  Weight: 111 kg

DRUGS (7)
  1. PROVERA [Suspect]
     Indication: HORMONE REPLACEMENT THERAPY
     Dosage: UNK
     Route: 048
     Dates: start: 19910101, end: 19990101
  2. PREMARIN [Suspect]
     Indication: HORMONE REPLACEMENT THERAPY
     Dosage: UNK
     Dates: start: 19910101, end: 19990101
  3. PREMPRO [Suspect]
     Indication: HORMONE REPLACEMENT THERAPY
     Dosage: 0.625/2.5MG
     Dates: start: 20020101
  4. PREFEST [Suspect]
     Indication: HORMONE REPLACEMENT THERAPY
     Dosage: UNK
     Route: 065
     Dates: start: 20000101, end: 20010101
  5. COMBIPATCH [Suspect]
     Indication: HORMONE REPLACEMENT THERAPY
     Dosage: 0.05/0.14MG
     Route: 065
     Dates: start: 20000101
  6. ALPRAZOLAM [Concomitant]
     Indication: ANXIETY
     Dosage: UNK
     Dates: start: 20010501, end: 20060801
  7. NEXIUM [Concomitant]
     Indication: ANTACID THERAPY
     Dosage: UNK
     Dates: start: 20021201, end: 20060801

REACTIONS (3)
  - BLINDNESS UNILATERAL [None]
  - BRAIN NEOPLASM MALIGNANT [None]
  - BREAST CANCER FEMALE [None]
